FAERS Safety Report 8834193 (Version 1)
Quarter: 2012Q4

REPORT INFORMATION
  Report Type: 
  Country: US (occurrence: US)
  Receive Date: 20121010
  Receipt Date: 20121010
  Transmission Date: 20130627
  Serious: No
  Sender: FDA-Public Use
  Company Number: US-ASTRAZENECA-2012SE77101

PATIENT
  Sex: Male

DRUGS (4)
  1. NEXIUM [Suspect]
     Route: 048
  2. PACERON [Concomitant]
  3. AMITRYN [Concomitant]
  4. SIMVASTATIN [Concomitant]

REACTIONS (2)
  - Parkinson^s disease [Unknown]
  - Gastric disorder [Unknown]
